FAERS Safety Report 5279329-3 (Version None)
Quarter: 2007Q1

REPORT INFORMATION
  Report Type: 
  Country: None (occurrence: None)
  Receive Date: 20070328
  Receipt Date: 20060331
  Transmission Date: 20070707
  Serious: No
  Sender: FDA-Public Use
  Company Number: US-AMGEN-US173755

PATIENT
  Sex: Male

DRUGS (8)
  1. NEULASTA [Suspect]
     Indication: CHEMOTHERAPY
     Route: 058
     Dates: start: 20060322
  2. ARANESP [Concomitant]
     Route: 058
     Dates: start: 20060322
  3. GEMZAR [Concomitant]
     Route: 065
  4. CARBOPLATIN [Concomitant]
     Route: 065
  5. ALOXI [Concomitant]
     Route: 065
  6. DOCETAXEL [Concomitant]
     Route: 065
  7. PREDNISONE [Concomitant]
     Route: 048
  8. WARFARIN SODIUM [Concomitant]
     Route: 048

REACTIONS (2)
  - PAIN [None]
  - PYREXIA [None]
